FAERS Safety Report 6754342-5 (Version None)
Quarter: 2010Q2

REPORT INFORMATION
  Report Type: 
  Country: None (occurrence: None)
  Receive Date: 20100603
  Receipt Date: 20100531
  Transmission Date: 20101027
  Serious: Yes (Death, Hospitalization)
  Sender: FDA-Public Use
  Company Number: CL-BRISTOL-MYERS SQUIBB COMPANY-15089576

PATIENT
  Age: 64 Year
  Sex: Female
  Weight: 58 kg

DRUGS (3)
  1. CETUXIMAB [Suspect]
     Indication: GASTROOESOPHAGEAL CANCER
     Dosage: MOST RECENT INF:19APR2010 TEMP DISCONT ON 27APR10
     Route: 042
     Dates: start: 20100412, end: 20100427
  2. CISPLATIN FOR INJ [Suspect]
     Indication: GASTROOESOPHAGEAL CANCER
     Dosage: ON DAY 1 OF CYCLE RECENT INFU:12APR10
     Route: 042
     Dates: start: 20100412
  3. CAPECITABINE [Suspect]
     Indication: GASTROOESOPHAGEAL CANCER
     Dosage: MOST RECENT INFU:25APR10 ON DAY 1-15
     Route: 048
     Dates: start: 20100412

REACTIONS (3)
  - DEHYDRATION [None]
  - FLUID IMBALANCE [None]
  - VOMITING [None]
